FAERS Safety Report 7486857-9 (Version None)
Quarter: 2011Q2

REPORT INFORMATION
  Report Type: 
  Country: None (occurrence: None)
  Receive Date: 20110517
  Receipt Date: 20110510
  Transmission Date: 20111010
  Serious: Yes (Other)
  Sender: FDA-Public Use
  Company Number: US-US-EMD SERONO, INC.-7056259

PATIENT
  Sex: Male

DRUGS (2)
  1. REBIF [Suspect]
     Indication: MULTIPLE SCLEROSIS
     Route: 058
     Dates: start: 20110322
  2. OTHER UNSPECIFIED MEDICATIONS [Concomitant]

REACTIONS (4)
  - ANGINA PECTORIS [None]
  - MUSCULAR WEAKNESS [None]
  - LIMB DISCOMFORT [None]
  - CARDIAC FLUTTER [None]
